FAERS Safety Report 6191747-8 (Version None)
Quarter: 2009Q2

REPORT INFORMATION
  Report Type: 
  Country: None (occurrence: None)
  Receive Date: 20090515
  Receipt Date: 20090505
  Transmission Date: 20091009
  Serious: Yes (Hospitalization)
  Sender: FDA-Public Use
  Company Number: GR-PFIZER INC-2009197352

PATIENT
  Age: 70 Year

DRUGS (11)
  1. BLINDED *PLACEBO [Suspect]
     Indication: NON-SMALL CELL LUNG CANCER
     Dosage: 37.5 MG, 1X/DAY
     Route: 048
     Dates: start: 20090310, end: 20090409
  2. BLINDED SUNITINIB MALATE [Suspect]
     Indication: NON-SMALL CELL LUNG CANCER
     Dosage: 37.5 MG, 1X/DAY
     Route: 048
     Dates: start: 20090310, end: 20090409
  3. *ERLOTINIB [Suspect]
     Indication: NON-SMALL CELL LUNG CANCER
     Dosage: 150 MG, 1X/DAY
     Route: 048
     Dates: start: 20090310, end: 20090409
  4. PANTOPRAZOLE [Concomitant]
     Indication: PROPHYLAXIS
     Dosage: UNK
     Dates: start: 20071001
  5. AMLODIPINE [Concomitant]
     Indication: HYPERTENSION
     Dosage: UNK
     Dates: start: 20000101
  6. FENOFIBRATE [Concomitant]
     Indication: HYPERLIPIDAEMIA
     Dosage: UNK
  7. CODEINE [Concomitant]
     Indication: PAIN
     Dosage: UNK
     Dates: start: 20081201
  8. METFORMIN [Concomitant]
     Indication: DIABETES MELLITUS
     Dosage: UNK
     Dates: start: 20000101
  9. FINASTERIDE [Concomitant]
     Indication: URINARY RETENTION
     Dosage: UNK
     Dates: start: 20090228
  10. SALBUTAMOL W/IPRATROPIUM [Concomitant]
     Indication: DYSPNOEA
     Dosage: UNK
     Dates: start: 20090302
  11. BUDESONIDE [Concomitant]
     Indication: DYSPNOEA
     Dosage: UNK
     Dates: start: 20090304

REACTIONS (2)
  - RESPIRATORY TRACT INFECTION [None]
  - URINARY TRACT INFECTION [None]
